FAERS Safety Report 6149567-6 (Version None)
Quarter: 2009Q2

REPORT INFORMATION
  Report Type: 
  Country: None (occurrence: None)
  Receive Date: 20090409
  Receipt Date: 20090401
  Transmission Date: 20091009
  Serious: Yes (Other)
  Sender: FDA-Public Use
  Company Number: PHEH2009US03255

PATIENT
  Sex: Female

DRUGS (1)
  1. GLEEVEC [Suspect]
     Dosage: 400 MG, UNK
     Dates: start: 20090101

REACTIONS (6)
  - BONE MARROW TRANSPLANT [None]
  - DIZZINESS [None]
  - NAUSEA [None]
  - SINUS DISORDER [None]
  - TINNITUS [None]
  - VOMITING [None]
